FAERS Safety Report 4359756-9 (Version None)
Quarter: 2004Q2

REPORT INFORMATION
  Report Type: 
  Country: None (occurrence: None)
  Receive Date: 20040512
  Receipt Date: 20040426
  Transmission Date: 20050107
  Serious: No
  Sender: FDA-Public Use
  Company Number: 2002GB00751

PATIENT
  Age: 63 Year
  Sex: Female
  Weight: 40 kg

DRUGS (2)
  1. NOLVADEX [Suspect]
     Indication: BREAST CANCER
     Dosage: 20 MG DAILY PO
     Route: 048
     Dates: start: 20011001, end: 20020301
  2. NOLVADEX [Suspect]
     Indication: BREAST CANCER
     Dosage: 20 MG DAILY PO
     Route: 048
     Dates: start: 20020328

REACTIONS (16)
  - BLOOD BLISTER [None]
  - CERVICAL DISCHARGE [None]
  - DIPLOPIA [None]
  - DYSPNOEA EXERTIONAL [None]
  - EPISTAXIS [None]
  - EYE PAIN [None]
  - EYE SWELLING [None]
  - HALLUCINATION, AUDITORY [None]
  - LUNG CREPITATION [None]
  - MOVEMENT DISORDER [None]
  - OEDEMA PERIPHERAL [None]
  - PEPTIC ULCER [None]
  - PITTING OEDEMA [None]
  - THROMBOSIS [None]
  - TONGUE ULCERATION [None]
  - UTERINE PAIN [None]
